FAERS Safety Report 23933852 (Version 3)
Quarter: 2024Q2

REPORT INFORMATION
  Report Type: Spontaneous
  Country: JP (occurrence: JP)
  Receive Date: 20240603
  Receipt Date: 20240628
  Transmission Date: 20240716
  Serious: Yes (Other)
  Sender: FDA-Public Use
  Company Number: JP-BRISTOL-MYERS SQUIBB COMPANY-2024-088480

PATIENT
  Age: 79 Year
  Sex: Male

DRUGS (10)
  1. ELIQUIS [Suspect]
     Active Substance: APIXABAN
     Indication: Atrial fibrillation
     Dosage: DOSE : 10MG/DAY, 1 TABLET OF 5MG EACH;     FREQ : IN THE MORNING AND IN THE EVENINIG
     Route: 048
     Dates: start: 20210108, end: 20240617
  2. ELIQUIS [Suspect]
     Active Substance: APIXABAN
     Dosage: DOSE : 10MG/DAY, 1 TABLET OF 5MG EACH;     FREQ : IN THE MORNING AND IN THE EVENINIG
     Route: 048
  3. HERBALS [Suspect]
     Active Substance: HERBALS
     Indication: Paralysis
     Route: 048
     Dates: start: 20221014, end: 20240617
  4. HERBALS [Suspect]
     Active Substance: HERBALS
     Dosage: TSUMURA GOSHAJINKIGAN, 2.5 G 2X/DAY (MORNING AND EVENING) FOR NUMBNESS IN TOES
  5. SPIRONOLACTONE [Concomitant]
     Active Substance: SPIRONOLACTONE
     Indication: Hypertension
     Dosage: MORNING
     Route: 048
     Dates: start: 20231227, end: 20240617
  6. NIFEDIPINE [Concomitant]
     Active Substance: NIFEDIPINE
     Indication: Hypertension
     Dosage: CR TABLETS (ZE)
     Route: 048
     Dates: start: 20131118, end: 20240617
  7. METHYLCOBALAMIN [Concomitant]
     Active Substance: METHYLCOBALAMIN
     Indication: Hypoaesthesia
     Dosage: MORNING AND EVENING
     Route: 048
     Dates: start: 20131118, end: 20240617
  8. IMIDAPRIL HYDROCHLORIDE TOWA [Concomitant]
     Indication: Hypertension
     Dosage: MORNING AND EVENING
     Route: 048
     Dates: start: 20220114, end: 20240617
  9. ESTAZOLAM [Concomitant]
     Active Substance: ESTAZOLAM
     Indication: Insomnia
     Dosage: BEFORE BEDTIME
     Route: 048
     Dates: start: 20131118, end: 20240617
  10. ZOLPIDEM TARTRATE [Concomitant]
     Active Substance: ZOLPIDEM TARTRATE
     Indication: Insomnia
     Dosage: BEFORE BEDTIME
     Route: 048
     Dates: start: 20131118, end: 20240617

REACTIONS (1)
  - Interstitial lung disease [Not Recovered/Not Resolved]

NARRATIVE: CASE EVENT DATE: 20240222
